FAERS Safety Report 12610175 (Version 1)
Quarter: 2016Q3

REPORT INFORMATION
  Report Type: Spontaneous
  Country: US (occurrence: US)
  Receive Date: 20160801
  Receipt Date: 20160801
  Transmission Date: 20161109
  Serious: No
  Sender: FDA-Public Use
  Company Number: US-BIOGEN-2016BI00268089

PATIENT
  Sex: Female

DRUGS (1)
  1. TYSABRI [Suspect]
     Active Substance: NATALIZUMAB
     Indication: MULTIPLE SCLEROSIS
     Route: 065
     Dates: start: 20111221

REACTIONS (13)
  - Oedema peripheral [Unknown]
  - Drug dose omission [Unknown]
  - Peripheral swelling [Unknown]
  - Constipation [Not Recovered/Not Resolved]
  - Stress [Not Recovered/Not Resolved]
  - Hemianaesthesia [Unknown]
  - Lethargy [Unknown]
  - Blood test abnormal [Not Recovered/Not Resolved]
  - Urinary tract infection [Unknown]
  - Inappropriate schedule of drug administration [Unknown]
  - Multiple sclerosis [Unknown]
  - Muscle twitching [Unknown]
  - Fatigue [Unknown]
